FAERS Safety Report 5885236-5 (Version None)
Quarter: 2008Q3

REPORT INFORMATION
  Report Type: 
  Country: None (occurrence: None)
  Receive Date: 20080916
  Receipt Date: 20080908
  Transmission Date: 20090109
  Serious: Yes (Death, Hospitalization)
  Sender: FDA-Public Use
  Company Number: DE-BRISTOL-MYERS SQUIBB COMPANY-14327373

PATIENT
  Age: 7 Decade
  Sex: Female

DRUGS (2)
  1. ABILIFY [Suspect]
     Indication: AGITATION
     Dosage: 3 DOSAGE FORM = 3 AMPOULES ,9.75MG IN TOTAL
     Route: 030
  2. HALOPERIDOL [Suspect]

REACTIONS (2)
  - CARDIAC FAILURE ACUTE [None]
  - DRUG INEFFECTIVE [None]
